FAERS Safety Report 17870378 (Version 4)
Quarter: 2020Q3

REPORT INFORMATION
  Report Type: Report from Study
  Country: RU (occurrence: RU)
  Receive Date: 20200608
  Receipt Date: 20200707
  Transmission Date: 20201103
  Serious: Yes (Death, Hospitalization)
  Sender: FDA-Public Use
  Company Number: RU-EISAI MEDICAL RESEARCH-EC-2020-075611

PATIENT
  Age: 51 Year
  Sex: Male
  Weight: 84 kg

DRUGS (13)
  1. TRAMADOL HYDROCHLORIDE. [Concomitant]
     Active Substance: TRAMADOL HYDROCHLORIDE
     Dates: start: 20200403
  2. FUROSEMIDE. [Concomitant]
     Active Substance: FUROSEMIDE
     Dates: start: 20200527, end: 20200527
  3. PEMBROLIZUMAB. [Suspect]
     Active Substance: PEMBROLIZUMAB
     Indication: NON-SMALL CELL LUNG CANCER
     Route: 041
     Dates: start: 20200402, end: 20200423
  4. PEMBROLIZUMAB. [Suspect]
     Active Substance: PEMBROLIZUMAB
     Route: 041
     Dates: start: 20200514, end: 20200514
  5. TIZANIDINE HYDROCHLORIDE. [Concomitant]
     Active Substance: TIZANIDINE HYDROCHLORIDE
     Dates: start: 202002
  6. KETOROL [Concomitant]
     Active Substance: KETOROLAC TROMETHAMINE
     Dates: start: 20200414
  7. KETOROL [Concomitant]
     Active Substance: KETOROLAC TROMETHAMINE
     Dates: start: 202002
  8. DICLOFENAC [Concomitant]
     Active Substance: DICLOFENAC
     Route: 030
     Dates: start: 202002
  9. ADEMETIONINE [Concomitant]
     Active Substance: ADEMETIONINE
     Dates: start: 20200514, end: 20200526
  10. NOLIPREL [Concomitant]
     Dates: start: 20200526
  11. NIFEDIPINE. [Concomitant]
     Active Substance: NIFEDIPINE
     Dates: start: 20200526, end: 20200526
  12. BISOPROLOL [Concomitant]
     Active Substance: BISOPROLOL
     Dates: start: 20200527
  13. LENVATINIB [Suspect]
     Active Substance: LENVATINIB
     Indication: NON-SMALL CELL LUNG CANCER
     Route: 048
     Dates: start: 20200402, end: 20200527

REACTIONS (2)
  - Embolism [Recovering/Resolving]
  - Death [Fatal]

NARRATIVE: CASE EVENT DATE: 20200601
